FAERS Safety Report 6588311-5 (Version None)
Quarter: 2010Q1

REPORT INFORMATION
  Report Type: 
  Country: None (occurrence: None)
  Receive Date: 20100218
  Receipt Date: 20100210
  Transmission Date: 20100710
  Serious: Yes (Hospitalization)
  Sender: FDA-Public Use
  Company Number: AT-ROCHE-679028

PATIENT
  Sex: Female
  Weight: 89 kg

DRUGS (13)
  1. CAPECITABINE [Suspect]
     Indication: COLON CANCER
     Dosage: INTERRUPTED.
     Route: 048
     Dates: start: 20090418
  2. BEVACIZUMAB [Suspect]
     Indication: COLON CANCER
     Dosage: TEMPORARILY INTERRUPTED, FREQUENCY: ONCE EVERY 3 WEEKS, FORM: INFUSION
     Route: 042
     Dates: start: 20090428
  3. AMLODIPINE [Suspect]
     Indication: HYPERTENSION
     Route: 048
  4. RAMICOMP [Suspect]
     Indication: HYPERTENSION
     Route: 048
  5. GLUCOPHAGE [Suspect]
     Indication: DIABETES MELLITUS
     Route: 048
  6. EUCREAS [Suspect]
     Indication: DIABETES MELLITUS
     Dosage: DOSE REPORTED AS: 50/1000
     Route: 048
  7. SELOKEN [Suspect]
     Indication: HYPERTENSION
     Dosage: DOSE: ^95^ MG
     Route: 048
  8. RAMIPRIL [Suspect]
     Indication: HYPERTENSION
     Route: 048
  9. CRESTOR [Suspect]
     Route: 048
  10. PANTOPRAZOLE [Concomitant]
     Indication: PROPHYLAXIS
     Dosage: DOSE: 40
     Route: 048
  11. VICARD [Concomitant]
  12. OLEOVIT D3 [Concomitant]
     Dosage: DRUG NAME REPORTED AS OLEOVIT D3 TROPFEN (VITAMIN D3)
  13. HALCION [Concomitant]

REACTIONS (1)
  - PROTEINURIA [None]
